FAERS Safety Report 9469854 (Version 3)
Quarter: 2013Q3

REPORT INFORMATION
  Report Type: Spontaneous
  Country: US (occurrence: US)
  Receive Date: 20130822
  Receipt Date: 20130924
  Transmission Date: 20140515
  Serious: No
  Sender: FDA-Public Use
  Company Number: US-JNJFOC-20130807269

PATIENT
  Sex: Female
  Weight: 46.72 kg

DRUGS (4)
  1. DURAGESIC [Suspect]
     Indication: BACK PAIN
     Route: 062
     Dates: start: 1997
  2. DURAGESIC [Suspect]
     Indication: BACK PAIN
     Route: 062
  3. GENERIC FENTANYL TRANSDERMAL SYSTEM [Suspect]
     Indication: BACK PAIN
     Route: 062
     Dates: start: 201101, end: 201102
  4. WELLBUTRIN [Concomitant]
     Indication: PAIN MANAGEMENT
     Route: 048
     Dates: start: 2012

REACTIONS (3)
  - Therapeutic response decreased [Not Recovered/Not Resolved]
  - Incorrect drug administration duration [Not Recovered/Not Resolved]
  - Product quality issue [Recovered/Resolved]
